FAERS Safety Report 20645076 (Version 1)
Quarter: 2022Q1

REPORT INFORMATION
  Report Type: Spontaneous
  Country: KR (occurrence: KR)
  Receive Date: 20220328
  Receipt Date: 20220328
  Transmission Date: 20220424
  Serious: Yes (Life-Threatening)
  Sender: FDA-Public Use
  Company Number: KR-ELI_LILLY_AND_COMPANY-KR202203011357

PATIENT
  Age: 60 Year
  Sex: Male

DRUGS (2)
  1. OLANZAPINE [Suspect]
     Active Substance: OLANZAPINE
     Indication: Fibula fracture
     Dosage: 10 MG, UNKNOWN
     Route: 065
     Dates: start: 20130618, end: 20130618
  2. HALOPERIDOL [Suspect]
     Active Substance: HALOPERIDOL
     Indication: Fibula fracture
     Dosage: 5 MG, UNKNOWN
     Route: 065
     Dates: start: 20130618, end: 20130618

REACTIONS (3)
  - Oxygen saturation decreased [Recovered/Resolved]
  - Dyspnoea [Recovered/Resolved]
  - Off label use [Unknown]

NARRATIVE: CASE EVENT DATE: 20130618
